FAERS Safety Report 23484707 (Version 1)
Quarter: 2024Q1

REPORT INFORMATION
  Report Type: Spontaneous
  Country: RU (occurrence: RU)
  Receive Date: 20240206
  Receipt Date: 20240206
  Transmission Date: 20240410
  Serious: Yes (Life-Threatening, Hospitalization)
  Sender: FDA-Public Use
  Company Number: RU-ABBVIE-5626405

PATIENT
  Age: 5 Year
  Sex: Female
  Weight: 20 kg

DRUGS (7)
  1. SEVOFLURANE [Suspect]
     Active Substance: SEVOFLURANE
     Indication: Anaesthesia
     Dosage: 2-4-6 VOL%
     Route: 055
     Dates: start: 20230715, end: 20230715
  2. SEVOFLURANE [Suspect]
     Active Substance: SEVOFLURANE
     Indication: Anaesthesia
     Dosage: 1 VOL.%
     Route: 055
  3. TRACRIUM [Concomitant]
     Active Substance: ATRACURIUM BESYLATE
     Indication: Product used for unknown indication
     Dosage: ATRACURIUM BESYLATE (TRACRIUM)
     Dates: start: 20230715, end: 20230715
  4. DEXTROSE [Suspect]
     Active Substance: DEXTROSE\DEXTROSE MONOHYDRATE
     Indication: Anaesthesia
     Dosage: DEXTROSE (GLUCOSE)
     Route: 065
     Dates: start: 20230715, end: 20230715
  5. ATROPINE [Suspect]
     Active Substance: ATROPINE\ATROPINE SULFATE
     Indication: Premedication
     Dosage: 0,2 ML
     Route: 065
     Dates: start: 20230715, end: 20230715
  6. PROPOFOL [Concomitant]
     Active Substance: PROPOFOL
     Indication: Sedative therapy
     Dosage: 60% 1 ML?FREQUENCY TEXT:  FRACTIONALLY
     Dates: start: 20230715, end: 20230715
  7. FENTANYL [Suspect]
     Active Substance: FENTANYL\FENTANYL CITRATE
     Indication: Anaesthesia
     Dosage: 3 MCG/KG (58,5 MCG)
     Route: 065
     Dates: start: 20230715, end: 20230715

REACTIONS (4)
  - Chest expansion decreased [Recovered/Resolved]
  - Hypersensitivity [Recovered/Resolved]
  - Wheezing [Recovered/Resolved]
  - Bronchospasm [Recovered/Resolved]

NARRATIVE: CASE EVENT DATE: 20230715
